FAERS Safety Report 7381641-9 (Version None)
Quarter: 2011Q1

REPORT INFORMATION
  Report Type: 
  Country: None (occurrence: None)
  Receive Date: 20110329
  Receipt Date: 20110321
  Transmission Date: 20110831
  Serious: Yes (Hospitalization)
  Sender: FDA-Public Use
  Company Number: US-B.I. PHARMACEUTICALS,INC./RIDGEFIELD-2011-BP-02582BP

PATIENT
  Age: 81 Year
  Sex: Female
  Weight: 71.2 kg

DRUGS (11)
  1. PRADAXA [Suspect]
     Indication: ATRIAL FIBRILLATION
     Dosage: 300 MG
     Dates: start: 20110116, end: 20110117
  2. LEXAPRO [Concomitant]
  3. VITAMIN D [Concomitant]
  4. CALCIUM [Concomitant]
  5. LASIX [Concomitant]
     Dates: start: 20070901
  6. KLOR-CON [Concomitant]
     Dates: start: 20070901
  7. VITAMIN E [Concomitant]
  8. FLUOXETINE HCL [Concomitant]
     Dosage: 10 MG
  9. VITAMIN B [Concomitant]
  10. MULTI-VITAMINS [Concomitant]
  11. FISH OIL [Concomitant]

REACTIONS (7)
  - OEDEMA PERIPHERAL [None]
  - DYSPHONIA [None]
  - DYSPHAGIA [None]
  - DISCOMFORT [None]
  - SWELLING [None]
  - ERYTHEMA [None]
  - PHARYNGEAL OEDEMA [None]
